FAERS Safety Report 15145735 (Version 2)
Quarter: 2018Q3

REPORT INFORMATION
  Report Type: Spontaneous
  Country: GB (occurrence: GB)
  Receive Date: 20180714
  Receipt Date: 20180725
  Transmission Date: 20181010
  Serious: Yes (Death)
  Sender: FDA-Public Use
  Company Number: GB-TEVA-2018-GB-924971

PATIENT
  Age: 88 Year
  Sex: Male

DRUGS (1)
  1. WARFARIN [Suspect]
     Active Substance: WARFARIN
     Indication: ATRIAL FIBRILLATION
     Dosage: AS ADVISED BY HIS GENERAL PRACTITIONER BASED ON INTERNATIONAL NORMALIZED RATIO MONITORING.
     Route: 048

REACTIONS (1)
  - Haemorrhage [Fatal]
